FAERS Safety Report 15080910 (Version 1)
Quarter: 2018Q2

REPORT INFORMATION
  Report Type: Spontaneous
  Country: IT (occurrence: IT)
  Receive Date: 20180628
  Receipt Date: 20180628
  Transmission Date: 20180711
  Serious: Yes (Other)
  Sender: FDA-Public Use
  Company Number: IT-TEVA-2018-IT-917293

PATIENT
  Age: 74 Year
  Sex: Female

DRUGS (5)
  1. RYTMONORM [Suspect]
     Active Substance: PROPAFENONE
     Indication: ATRIAL FIBRILLATION
     Dosage: 45 MILLIGRAM DAILY;
     Route: 048
     Dates: start: 20170101, end: 20170716
  2. TRIATEC HCT 5 MG + 25 MG TABLET [Concomitant]
  3. OMISTAT [Concomitant]
  4. PRADAXA 75?MG HARD CAPSULES [Concomitant]
     Route: 048
  5. EUTIROX [Concomitant]
     Active Substance: LEVOTHYROXINE SODIUM

REACTIONS (4)
  - Atrial fibrillation [Recovering/Resolving]
  - Cardioversion [Recovering/Resolving]
  - Tachycardia [Recovering/Resolving]
  - Palpitations [Recovering/Resolving]

NARRATIVE: CASE EVENT DATE: 20170716
